FAERS Safety Report 6998224-2 (Version None)
Quarter: 2010Q3

REPORT INFORMATION
  Report Type: 
  Country: None (occurrence: None)
  Receive Date: 20100920
  Receipt Date: 20100517
  Transmission Date: 20110219
  Serious: No
  Sender: FDA-Public Use
  Company Number: US-ASTRAZENECA-2010SE27493

PATIENT
  Sex: Female

DRUGS (6)
  1. SEROQUEL [Suspect]
     Dosage: TAKE 1/2 TABLET TW
     Route: 048
     Dates: start: 20020705
  2. TRILEPTAL [Concomitant]
     Dosage: TAKE TWO TABLET
     Dates: start: 20020326
  3. TRAZODONE HCL [Concomitant]
     Dosage: TAKE 2 TABLETS AT
     Dates: start: 20020516
  4. ALPRAZOLAM [Concomitant]
     Dosage: TAKE 1 TABLETS 3 TI
     Dates: start: 20020318
  5. EFFEXOR XR [Concomitant]
     Dosage: TAKE 1 TABLET TW
     Dates: start: 20020613
  6. PROMETHAZINE [Concomitant]
     Dosage: TAKE 1 TABLET EVER
     Dates: start: 20020727

REACTIONS (4)
  - DIABETES MELLITUS [None]
  - HEADACHE [None]
  - MIGRAINE [None]
  - SCHIZOPHRENIA [None]
